FAERS Safety Report 6781107-0 (Version None)
Quarter: 2010Q2

REPORT INFORMATION
  Report Type: 
  Country: None (occurrence: None)
  Receive Date: 20100617
  Receipt Date: 20100617
  Transmission Date: 20101027
  Serious: No
  Sender: FDA-Public Use
  Company Number: None

PATIENT
  Age: 70 Year
  Sex: Male
  Weight: 93.441 kg

DRUGS (1)
  1. FLOMAX [Suspect]
     Dosage: 0.4 MG 1 QD PO
     Route: 048
     Dates: start: 20100501, end: 20100601

REACTIONS (3)
  - DIZZINESS [None]
  - DYSSTASIA [None]
  - NAUSEA [None]
